FAERS Safety Report 8839796 (Version 1)
Quarter: 2012Q4

REPORT INFORMATION
  Report Type: 
  Country: US (occurrence: US)
  Receive Date: 20121015
  Receipt Date: 20121015
  Transmission Date: 20130627
  Serious: No
  Sender: FDA-Public Use
  Company Number: US-BRISTOL-MYERS SQUIBB COMPANY-16218711

PATIENT
  Age: 65 Year
  Sex: Female
  Weight: 58 kg

DRUGS (3)
  1. KENALOG-40 INJ [Suspect]
     Indication: SPINAL OSTEOARTHRITIS
     Dosage: 1 or 2 inj on 2Feb11,4 inj on 1Apr2011, 2 inj on 25Jul2011, and 3 inj on 27Sep2011.Total:120mg
     Dates: start: 20110202
  2. AMBIEN [Concomitant]
  3. KLONOPIN [Concomitant]

REACTIONS (8)
  - Increased tendency to bruise [Unknown]
  - Swelling face [Unknown]
  - Local swelling [Unknown]
  - Weight increased [Unknown]
  - Feeling hot [Unknown]
  - Muscle spasms [Unknown]
  - Limb injury [Unknown]
  - Laceration [Unknown]
